FAERS Safety Report 10020535 (Version 1)
Quarter: 2014Q1

REPORT INFORMATION
  Report Type: Spontaneous
  Country: US (occurrence: US)
  Receive Date: 20140319
  Receipt Date: 20140319
  Transmission Date: 20141002
  Serious: No
  Sender: FDA-Public Use
  Company Number: US-BIOGENIDEC-2014BI023095

PATIENT
  Age: 50 Year
  Sex: Female

DRUGS (9)
  1. TECFIDERA [Suspect]
     Indication: MULTIPLE SCLEROSIS
     Route: 048
     Dates: start: 20130720
  2. TREXIMET [Concomitant]
  3. VALACYCLOVIR [Concomitant]
  4. VIT E [Concomitant]
  5. AMITRIPTYLINE [Concomitant]
  6. CALCIUM [Concomitant]
  7. TOPAMAX [Concomitant]
  8. GABAPENTIN [Concomitant]
  9. TEMAZEPAM [Concomitant]

REACTIONS (1)
  - Heart rate irregular [Not Recovered/Not Resolved]
